FAERS Safety Report 9022943 (Version 1)
Quarter: 2013Q1

REPORT INFORMATION
  Report Type: Spontaneous
  Country: US (occurrence: US)
  Receive Date: 20130120
  Receipt Date: 20130120
  Transmission Date: 20140127
  Serious: No
  Sender: FDA-Public Use
  Company Number: US-ALLERGAN-1216350US

PATIENT
  Age: 42 Year
  Sex: Female

DRUGS (3)
  1. BOTOX? [Suspect]
     Indication: MIGRAINE
     Dosage: 50 UNITS, SINGLE
     Route: 030
     Dates: start: 20121119, end: 20121119
  2. BOTOX? [Suspect]
     Indication: SKIN WRINKLING
  3. BOTOX? [Suspect]
     Indication: SKIN WRINKLING

REACTIONS (3)
  - Incorrect dose administered [Unknown]
  - Injection site pain [Unknown]
  - Injection site pain [Unknown]
